FAERS Safety Report 22357198 (Version 2)
Quarter: 2023Q2

REPORT INFORMATION
  Report Type: Report from Study
  Country: BR (occurrence: BR)
  Receive Date: 20230524
  Receipt Date: 20230531
  Transmission Date: 20230722
  Serious: Yes (Hospitalization, Other)
  Sender: FDA-Public Use
  Company Number: BR-CELLTRION INC.-2023BR010616

PATIENT

DRUGS (1)
  1. INFLIXIMAB [Suspect]
     Active Substance: INFLIXIMAB
     Indication: Colitis ulcerative
     Dosage: 4 AMPOULES EVERY 8 WEEKS
     Route: 042
     Dates: start: 20220214

REACTIONS (4)
  - Haematochezia [Recovering/Resolving]
  - Frequent bowel movements [Recovering/Resolving]
  - Drug ineffective [Recovering/Resolving]
  - Therapy interrupted [Recovering/Resolving]
